FAERS Safety Report 10438483 (Version 2)
Quarter: 2014Q3

REPORT INFORMATION
  Report Type: Spontaneous
  Country: US (occurrence: US)
  Receive Date: 20140908
  Receipt Date: 20140908
  Transmission Date: 20150326
  Serious: No
  Sender: FDA-Public Use
  Company Number: US-BRISTOL-MYERS SQUIBB COMPANY-20566485

PATIENT
  Age: 56 Year
  Sex: Male
  Weight: 104.31 kg

DRUGS (4)
  1. HCTZ [Concomitant]
     Active Substance: HYDROCHLOROTHIAZIDE
  2. ABILIFY [Suspect]
     Active Substance: ARIPIPRAZOLE
     Indication: DEPRESSION
     Dosage: 5MG TABS- TAKES 1/2 TABLET, 2.5 MG BID
  3. TRAZODONE HYDROCHLORIDE. [Concomitant]
     Active Substance: TRAZODONE HYDROCHLORIDE
     Dosage: 100MG TABS- TAKES 1/2 TABLET, 50MG QHS
  4. BUPROPION [Concomitant]
     Active Substance: BUPROPION

REACTIONS (2)
  - Wrong technique in drug usage process [Unknown]
  - Drug dose omission [Unknown]

NARRATIVE: CASE EVENT DATE: 20140324
